FAERS Safety Report 11521991 (Version 1)
Quarter: 2015Q3

REPORT INFORMATION
  Report Type: Spontaneous
  Country: US (occurrence: US)
  Receive Date: 20150903
  Receipt Date: 20150903
  Transmission Date: 20151125
  Serious: No
  Sender: FDA-Public Use
  Company Number: US-ELI_LILLY_AND_COMPANY-US201301002742

PATIENT
  Age: 66 Year
  Sex: Female

DRUGS (4)
  1. CYMBALTA [Suspect]
     Active Substance: DULOXETINE HYDROCHLORIDE
     Dosage: 30 MG, QOD
  2. CYMBALTA [Suspect]
     Active Substance: DULOXETINE HYDROCHLORIDE
     Dosage: 60 MG, UNK
     Dates: end: 20121221
  3. CYMBALTA [Suspect]
     Active Substance: DULOXETINE HYDROCHLORIDE
     Indication: BACK PAIN
     Dosage: 30 MG, UNK
  4. CYMBALTA [Suspect]
     Active Substance: DULOXETINE HYDROCHLORIDE
     Dosage: 60 MG, QOD
     Dates: start: 20121227

REACTIONS (10)
  - Blood pressure increased [Recovered/Resolved]
  - Impaired gastric emptying [Unknown]
  - Insomnia [Unknown]
  - Blood glucose increased [Recovered/Resolved]
  - Vision blurred [Unknown]
  - Migraine [Unknown]
  - Drug withdrawal syndrome [Unknown]
  - Paraesthesia [Recovered/Resolved]
  - Off label use [Unknown]
  - Crying [Unknown]
